FAERS Safety Report 22364612 (Version 1)
Quarter: 2023Q2

REPORT INFORMATION
  Report Type: Spontaneous
  Country: US (occurrence: US)
  Receive Date: 20230525
  Receipt Date: 20230525
  Transmission Date: 20230722
  Serious: Yes (Other)
  Sender: FDA-Public Use
  Company Number: US-SUN PHARMACEUTICAL INDUSTRIES LTD-2023R1-389694

PATIENT
  Age: 47 Year
  Sex: Female

DRUGS (6)
  1. ONDANSETRON [Suspect]
     Active Substance: ONDANSETRON
     Indication: Porphyria acute
     Dosage: UNK
     Route: 065
  2. RANITIDINE [Suspect]
     Active Substance: RANITIDINE
     Indication: Porphyria acute
     Dosage: 150 MILLIGRAM, DAILY
     Route: 065
  3. CIMETIDINE [Suspect]
     Active Substance: CIMETIDINE
     Indication: Porphyria acute
     Dosage: 400 MILLIGRAM, BID
     Route: 065
  4. DEXTROSE [Suspect]
     Active Substance: DEXTROSE\DEXTROSE MONOHYDRATE
     Indication: Porphyria acute
     Dosage: UNK
     Route: 042
  5. HEME [Suspect]
     Active Substance: HEME
     Indication: Porphyria acute
     Dosage: UNK
     Route: 042
  6. PROMETHAZINE [Suspect]
     Active Substance: PROMETHAZINE HYDROCHLORIDE
     Indication: Porphyria acute
     Dosage: UNK
     Route: 065

REACTIONS (2)
  - Drug ineffective [Unknown]
  - Condition aggravated [Unknown]
